FAERS Safety Report 8412055-8 (Version None)
Quarter: 2012Q2

REPORT INFORMATION
  Report Type: 
  Country: None (occurrence: None)
  Receive Date: 20120605
  Receipt Date: 20120531
  Transmission Date: 20120825
  Serious: No
  Sender: FDA-Public Use
  Company Number: US-ASTRAZENECA-2011SE41454

PATIENT
  Age: 62 Year
  Sex: Female
  Weight: 83.9 kg

DRUGS (49)
  1. NEXIUM [Suspect]
     Indication: CHEST PAIN
     Route: 048
     Dates: start: 20010101
  2. NEXIUM [Suspect]
     Route: 048
     Dates: start: 20100731
  3. ATENOLOL [Concomitant]
     Indication: CARDIAC DISORDER
  4. ATENOLOL [Concomitant]
     Dates: start: 20100731
  5. PLAVIX [Concomitant]
     Indication: PERIPHERAL VASCULAR DISORDER
     Dates: start: 20050101
  6. CELEXA [Concomitant]
     Indication: DEPRESSION
     Dates: start: 20050101
  7. NORVASC [Concomitant]
     Indication: BLOOD PRESSURE
  8. PAXIL [Concomitant]
  9. EFFEXOR XR [Concomitant]
     Dates: end: 20050101
  10. UROMAR [Concomitant]
     Indication: BLADDER SPASM
  11. AVAPRO [Concomitant]
     Dates: start: 20100731
  12. PRILOSEC [Concomitant]
     Indication: CHEST PAIN
  13. CELEXA [Concomitant]
     Dates: start: 20100731
  14. NEXIUM [Suspect]
     Route: 048
     Dates: start: 20011218
  15. ZOCOR [Concomitant]
     Indication: BLOOD CHOLESTEROL
  16. NEXIUM [Suspect]
     Route: 048
  17. HYDROCHLOROTHIZIDE [Concomitant]
     Indication: CARDIAC DISORDER
  18. PRILOSEC [Concomitant]
     Dates: start: 20010324
  19. PAXIL [Concomitant]
     Indication: DEPRESSION
     Dates: start: 20011218
  20. NITROGLYCERIN [Concomitant]
     Indication: OESOPHAGEAL SPASM
  21. BENTYL [Concomitant]
  22. NEXIUM [Suspect]
     Dosage: 1/DAY, TOOK 2/DAY FROM FEBRUARY 2006 TO DECEMBER 2006
     Route: 048
     Dates: start: 20010401
  23. PRILOSEC [Concomitant]
     Dates: start: 20010724
  24. PRILOSEC [Concomitant]
     Dates: start: 20010724
  25. LEVOTHYROXINE SODIUM [Concomitant]
     Indication: HYPOTHYROIDISM
     Dosage: 80 TO 88 MCG
  26. PLAVIX [Concomitant]
     Indication: CARDIAC DISORDER
     Dates: start: 20050101
  27. CELEXA [Concomitant]
     Dates: start: 20100731
  28. CENESTIN [Concomitant]
     Indication: HORMONE THERAPY
  29. DIOVAN [Concomitant]
     Indication: BLOOD PRESSURE
  30. METAMUCIL-2 [Concomitant]
  31. PCE [Concomitant]
  32. NEXIUM [Suspect]
     Indication: GASTROOESOPHAGEAL REFLUX DISEASE
     Route: 048
     Dates: start: 20010101
  33. NEXIUM [Suspect]
     Route: 048
  34. NEXIUM [Suspect]
     Dosage: 1/DAY, TOOK 2/DAY FROM FEBRUARY 2006 TO DECEMBER 2006
     Route: 048
     Dates: start: 20010401
  35. NEXIUM [Suspect]
     Route: 048
     Dates: start: 20100731
  36. AVAPRO [Concomitant]
     Indication: CARDIAC DISORDER
     Dosage: 30 MG
  37. PRILOSEC [Concomitant]
     Indication: GASTROOESOPHAGEAL REFLUX DISEASE
  38. ASPIRIN [Concomitant]
     Indication: ANTICOAGULANT THERAPY
  39. EFFEXOR XR [Concomitant]
     Indication: DEPRESSION
     Dates: start: 20011219
  40. CEFZIL [Concomitant]
  41. HYDROCHLOROTHIZIDE [Concomitant]
     Dates: start: 20100731
  42. ZOCOR [Concomitant]
     Dates: start: 20100731
  43. CELEXA [Concomitant]
     Indication: ANXIETY
     Dates: start: 20050101
  44. CENESTIN [Concomitant]
     Dates: end: 20060101
  45. FOSAMOX [Concomitant]
     Indication: OSTEOPOROSIS
  46. PHENERGAN [Concomitant]
  47. NEXIUM [Suspect]
     Route: 048
     Dates: start: 20011218
  48. PRILOSEC [Concomitant]
     Dates: start: 20010324
  49. PREMARIN [Concomitant]
     Indication: HORMONE THERAPY

REACTIONS (15)
  - ABDOMINAL PAIN LOWER [None]
  - ARTHROPATHY [None]
  - ABDOMINAL PAIN [None]
  - BONE DENSITY DECREASED [None]
  - NECK PAIN [None]
  - PERIPHERAL VASCULAR DISORDER [None]
  - CHEST PAIN [None]
  - FALL [None]
  - MUSCULOSKELETAL DISCOMFORT [None]
  - LIMB DISCOMFORT [None]
  - INFLUENZA [None]
  - HYPOTHYROIDISM [None]
  - DEPRESSION [None]
  - OSTEOPOROSIS [None]
  - OSTEOPENIA [None]
